FAERS Safety Report 5824175-2 (Version None)
Quarter: 2008Q3

REPORT INFORMATION
  Report Type: 
  Country: None (occurrence: None)
  Receive Date: 20080722
  Receipt Date: 20080711
  Transmission Date: 20090109
  Serious: Yes (Hospitalization)
  Sender: FDA-Public Use
  Company Number: 2008-02266

PATIENT
  Age: 57 Year
  Sex: Male
  Weight: 86 kg

DRUGS (7)
  1. VELCADE [Suspect]
     Indication: MULTIPLE MYELOMA
     Dosage: 1.3 MG/M2, INTRAVENOUS
     Route: 042
     Dates: start: 20080501, end: 20080612
  2. DOXORUBICIN HCL [Suspect]
     Indication: MULTIPLE MYELOMA
     Dosage: 9 MG/M2, INTRAVENOUS
     Route: 042
     Dates: start: 20080501, end: 20080605
  3. DEXAMETHASONE TAB [Suspect]
     Indication: MULTIPLE MYELOMA
     Dosage: 40 MG, INTRAVENOUS
     Route: 042
     Dates: start: 20080501, end: 20080610
  4. MOVICOL (SODIUM BICARBONATE, SODIUM CHLORIDE, MACROGOL, POTASSIUM CHLO [Concomitant]
  5. TRAMADOL HCL [Concomitant]
  6. STILNOCT (ZOLPIDEM TARTRATE) [Concomitant]
  7. CRESTOR [Concomitant]

REACTIONS (3)
  - HAEMORRHOIDS [None]
  - MALAISE [None]
  - URINARY RETENTION [None]
